FAERS Safety Report 7177416-6 (Version None)
Quarter: 2010Q4

REPORT INFORMATION
  Report Type: 
  Country: None (occurrence: None)
  Receive Date: 20101220
  Receipt Date: 20101213
  Transmission Date: 20110411
  Serious: Yes (Other)
  Sender: FDA-Public Use
  Company Number: US-SANOFI-AVENTIS-2010SA076204

PATIENT

DRUGS (1)
  1. MULTAQ [Suspect]
     Route: 065

REACTIONS (2)
  - ELECTROCARDIOGRAM QT INTERVAL ABNORMAL [None]
  - TORSADE DE POINTES [None]
